FAERS Safety Report 15578716 (Version 2)
Quarter: 2018Q4

REPORT INFORMATION
  Report Type: Report from Study
  Country: US (occurrence: US)
  Receive Date: 20181102
  Receipt Date: 20181129
  Transmission Date: 20190205
  Serious: No
  Sender: FDA-Public Use
  Company Number: PHHY2018US137300

PATIENT
  Age: 5 Year
  Sex: Female
  Weight: 116.5 kg

DRUGS (12)
  1. ZOVIRAX [Concomitant]
     Active Substance: ACYCLOVIR
     Indication: ANTIVIRAL PROPHYLAXIS
     Dosage: 400 MG, TID
     Route: 048
     Dates: start: 20180928
  2. ZOFRON [Concomitant]
     Active Substance: ONDANSETRON
     Indication: NAUSEA
     Dosage: 2 MG, Q8H
     Route: 065
     Dates: start: 20180913, end: 20181008
  3. MARINOL [Concomitant]
     Active Substance: DRONABINOL
     Indication: NAUSEA
     Dosage: 2.5 MG, BID
     Route: 048
     Dates: start: 20180924
  4. BACTRIM [Concomitant]
     Active Substance: SULFAMETHOXAZOLE\TRIMETHOPRIM
     Indication: PROPHYLAXIS
     Dosage: 60 MG TWICE A DAY ON FRIDAY, SATURDAY, SUNDAY
     Route: 065
     Dates: start: 20180914
  5. GAMUNEX [Concomitant]
     Active Substance: HUMAN IMMUNOGLOBULIN G
     Indication: IMMUNOGLOBULINS DECREASED
     Dosage: UNK
     Route: 042
     Dates: start: 20181005
  6. IMODIUM [Concomitant]
     Active Substance: LOPERAMIDE HYDROCHLORIDE
     Indication: PROPHYLAXIS AGAINST DIARRHOEA
     Dosage: 1 MG, BID
     Route: 065
     Dates: start: 20180827
  7. ZOFRON [Concomitant]
     Active Substance: ONDANSETRON
     Indication: VOMITING
  8. AQUAPHOR [Concomitant]
     Active Substance: PETROLATUM
     Indication: PRODUCT USED FOR UNKNOWN INDICATION
     Dosage: UNK UNK, PRN
     Route: 061
     Dates: start: 20180322
  9. KEPPRA [Concomitant]
     Active Substance: LEVETIRACETAM
     Indication: SEIZURE PROPHYLAXIS
     Dosage: 220 MG, Q12H
     Route: 048
     Dates: start: 20180919, end: 20180927
  10. KYMRIAH [Suspect]
     Active Substance: TISAGENLECLEUCEL
     Indication: PRODUCT USED FOR UNKNOWN INDICATION
     Dosage: UNK
     Route: 065
     Dates: start: 20180919
  11. ZOVIRAX [Concomitant]
     Active Substance: ACYCLOVIR
     Indication: ANTIVIRAL PROPHYLAXIS
     Dosage: 332 MG, TID,200 MG/5ML SUSPENSION
     Route: 065
     Dates: start: 20180919, end: 20180927
  12. ZANTAC [Concomitant]
     Active Substance: RANITIDINE HYDROCHLORIDE
     Indication: GASTROOESOPHAGEAL REFLUX DISEASE
     Dosage: 30 MG, BID
     Route: 065
     Dates: start: 20180913

REACTIONS (9)
  - Blood creatinine decreased [Recovered/Resolved]
  - Granulocyte count decreased [Recovered/Resolved]
  - B-lymphocyte count decreased [Recovered/Resolved]
  - Blood bilirubin decreased [Not Recovered/Not Resolved]
  - Neutrophil count decreased [Recovered/Resolved]
  - Blood urea decreased [Recovered/Resolved]
  - White blood cell count decreased [Recovered/Resolved]
  - Hyperuricaemia [Recovered/Resolved]
  - Blood immunoglobulin G decreased [Recovered/Resolved]

NARRATIVE: CASE EVENT DATE: 20180921
